FAERS Safety Report 8845996 (Version 1)
Quarter: 2012Q4

REPORT INFORMATION
  Report Type: 
  Country: IT (occurrence: IT)
  Receive Date: 20121017
  Receipt Date: 20121017
  Transmission Date: 20130627
  Serious: Yes (Other)
  Sender: FDA-Public Use
  Company Number: IT-TEVA-364771ISR

PATIENT
  Age: 38 Year
  Sex: Female

DRUGS (1)
  1. AMOXICILLIN [Suspect]
     Dosage: 1 Gram Daily;
     Route: 048
     Dates: start: 20121001, end: 20121001

REACTIONS (2)
  - Palpitations [Recovering/Resolving]
  - Generalised erythema [Recovering/Resolving]
